FAERS Safety Report 6027459-0 (Version None)
Quarter: 2009Q1

REPORT INFORMATION
  Report Type: 
  Country: None (occurrence: None)
  Receive Date: 20090105
  Receipt Date: 20081223
  Transmission Date: 20090719
  Serious: Yes (Hospitalization)
  Sender: FDA-Public Use
  Company Number: SE-SANOFI-SYNTHELABO-A01200816434

PATIENT
  Sex: Male

DRUGS (5)
  1. PANTOPRAZOLE SODIUM [Concomitant]
     Indication: DRUG USE FOR UNKNOWN INDICATION
     Dosage: UNK
     Route: 048
  2. TRAMADOL ACTAVIS [Concomitant]
     Indication: DRUG USE FOR UNKNOWN INDICATION
     Dosage: UNK
     Route: 048
  3. XATRAL OD [Suspect]
     Indication: PROSTATISM
     Route: 048
     Dates: start: 20070101
  4. ADRENALINE MERCK [Interacting]
     Indication: URTICARIA
     Dosage: 1.1 MG IN TOTAL OVER 2 DAYS
     Route: 058
     Dates: start: 20080902, end: 20080902
  5. ADRENALINE MERCK [Interacting]
     Dosage: 1.1 MG IN TOTAL OVER 2 DAYS
     Route: 030
     Dates: start: 20080903, end: 20080903

REACTIONS (5)
  - ANAPHYLACTIC REACTION [None]
  - DRUG INEFFECTIVE [None]
  - DYSPNOEA [None]
  - INHIBITORY DRUG INTERACTION [None]
  - URTICARIA [None]
